FAERS Safety Report 7376706-1 (Version None)
Quarter: 2011Q1

REPORT INFORMATION
  Report Type: 
  Country: None (occurrence: None)
  Receive Date: 20110325
  Receipt Date: 20110323
  Transmission Date: 20110831
  Serious: Yes (Disabling)
  Sender: FDA-Public Use
  Company Number: IT-ABBOTT-11P-083-0706777-00

PATIENT
  Sex: Female

DRUGS (5)
  1. ENANTONE 3.75 MG [Suspect]
     Indication: BREAST CANCER
     Route: 030
     Dates: start: 20070201, end: 20070415
  2. ENANTONE 3.75 MG [Suspect]
     Dates: start: 20100201
  3. ENANTONE 11.25 MG [Suspect]
     Indication: BREAST CANCER
     Route: 030
     Dates: start: 20070501, end: 20100215
  4. ENANTONE 3.75 MG [Suspect]
     Route: 030
  5. NOLVADEX [Concomitant]
     Indication: PRODUCT USED FOR UNKNOWN INDICATION
     Route: 048
     Dates: start: 20061201, end: 20110211

REACTIONS (1)
  - TENDONITIS [None]
